FAERS Safety Report 18194716 (Version 1)
Quarter: 2020Q3

REPORT INFORMATION
  Report Type: Spontaneous
  Country: US (occurrence: US)
  Receive Date: 20200825
  Receipt Date: 20200825
  Transmission Date: 20201103
  Serious: No
  Sender: FDA-Public Use
  Company Number: US-BEH-2020121592

PATIENT
  Sex: Female

DRUGS (1)
  1. HIZENTRA [Suspect]
     Active Substance: HUMAN IMMUNOGLOBULIN G
     Indication: IMMUNODEFICIENCY COMMON VARIABLE
     Dosage: 18 GRAM (8G+10G), QOW
     Route: 058
     Dates: start: 20191022

REACTIONS (4)
  - Cough [Unknown]
  - Dyspepsia [Unknown]
  - Ill-defined disorder [Unknown]
  - Infection [Unknown]
